FAERS Safety Report 6120562-6 (Version None)
Quarter: 2009Q1

REPORT INFORMATION
  Report Type: 
  Country: None (occurrence: None)
  Receive Date: 20090317
  Receipt Date: 20090305
  Transmission Date: 20090719
  Serious: Yes (Other)
  Sender: FDA-Public Use
  Company Number: US-JNJFOC-20090301578

PATIENT
  Sex: Female
  Weight: 65.77 kg

DRUGS (5)
  1. REMICADE [Suspect]
     Route: 042
  2. REMICADE [Suspect]
     Indication: RHEUMATOID ARTHRITIS
     Route: 042
  3. CALCIUM [Concomitant]
  4. VITAMIN D [Concomitant]
  5. VOLTAREN [Concomitant]

REACTIONS (5)
  - BACK PAIN [None]
  - COUGH [None]
  - DRY MOUTH [None]
  - SYSTEMIC LUPUS ERYTHEMATOSUS RASH [None]
  - URTICARIA [None]
